FAERS Safety Report 12379284 (Version 1)
Quarter: 2016Q2

REPORT INFORMATION
  Report Type: Spontaneous
  Country: US (occurrence: US)
  Receive Date: 20160517
  Receipt Date: 20160517
  Transmission Date: 20160815
  Serious: No
  Sender: FDA-Public Use
  Company Number: US-RELYPSA-RLY2016000355

PATIENT

DRUGS (12)
  1. NITROSTAT [Concomitant]
     Active Substance: NITROGLYCERIN
  2. VITAMIN D                          /00107901/ [Concomitant]
     Active Substance: ERGOCALCIFEROL
  3. STARLIX [Concomitant]
     Active Substance: NATEGLINIDE
  4. XALATAN [Concomitant]
     Active Substance: LATANOPROST
  5. VELTASSA [Suspect]
     Active Substance: PATIROMER
     Indication: HYPERKALAEMIA
     Dosage: 16.8 G, QD
     Route: 048
     Dates: start: 20160325
  6. VITAMIN B12 [Concomitant]
     Active Substance: CYANOCOBALAMIN
  7. TRUSOPT [Concomitant]
     Active Substance: DORZOLAMIDE HYDROCHLORIDE
  8. PROCARDIA [Concomitant]
     Active Substance: NIFEDIPINE
  9. TIMOPTIC [Concomitant]
     Active Substance: TIMOLOL MALEATE
  10. RANEXA [Concomitant]
     Active Substance: RANOLAZINE
  11. PROCRIT [Concomitant]
     Active Substance: ERYTHROPOIETIN
  12. PLAVIX [Concomitant]
     Active Substance: CLOPIDOGREL BISULFATE

REACTIONS (2)
  - Constipation [Unknown]
  - Dyspnoea [Unknown]
